FAERS Safety Report 7796609-8 (Version None)
Quarter: 2011Q4

REPORT INFORMATION
  Report Type: 
  Country: None (occurrence: None)
  Receive Date: 20111005
  Receipt Date: 20110923
  Transmission Date: 20120403
  Serious: Yes (Other)
  Sender: FDA-Public Use
  Company Number: US-ELI_LILLY_AND_COMPANY-US201109008009

PATIENT
  Age: 59 Year
  Sex: Female

DRUGS (1)
  1. CYMBALTA [Suspect]
     Indication: FIBROMYALGIA
     Dosage: 30 MG, QD
     Dates: start: 20110701, end: 20110901

REACTIONS (7)
  - PARAESTHESIA [None]
  - RASH [None]
  - HAIR DISORDER [None]
  - ALOPECIA [None]
  - ACNE [None]
  - BURNING SENSATION [None]
  - BLISTER [None]
